FAERS Safety Report 11401022 (Version 2)
Quarter: 2015Q3

REPORT INFORMATION
  Report Type: Spontaneous
  Country: CH (occurrence: CH)
  Receive Date: 20150820
  Receipt Date: 20150827
  Transmission Date: 20151125
  Serious: Yes (Other)
  Sender: FDA-Public Use
  Company Number: CH-JNJFOC-20150811895

PATIENT
  Age: 49 Year
  Sex: Female

DRUGS (2)
  1. TOPAMAX [Suspect]
     Active Substance: TOPIRAMATE
     Indication: PAIN PROPHYLAXIS
     Route: 048
     Dates: start: 20150724
  2. TOPAMAX [Suspect]
     Active Substance: TOPIRAMATE
     Indication: PAIN PROPHYLAXIS
     Route: 048
     Dates: start: 2015, end: 20150808

REACTIONS (1)
  - Ocular hypertension [Not Recovered/Not Resolved]

NARRATIVE: CASE EVENT DATE: 20150808
